FAERS Safety Report 4292936-X (Version None)
Quarter: 2004Q1

REPORT INFORMATION
  Report Type: 
  Country: None (occurrence: None)
  Receive Date: 20040212
  Receipt Date: 20030729
  Transmission Date: 20041129
  Serious: Yes (Hospitalization)
  Sender: FDA-Public Use
  Company Number: US-GLAXOSMITHKLINE-A0418632A

PATIENT
  Age: 44 Year
  Sex: Female

DRUGS (2)
  1. PAXIL [Suspect]
     Indication: ANXIETY
     Route: 048
     Dates: start: 20030101
  2. YASMIN [Concomitant]
     Indication: HORMONE REPLACEMENT THERAPY

REACTIONS (7)
  - ASTHENIA [None]
  - HEADACHE [None]
  - MIGRAINE [None]
  - NAUSEA [None]
  - OBSESSIVE THOUGHTS [None]
  - PARAESTHESIA [None]
  - WEIGHT INCREASED [None]
